FAERS Safety Report 5059564-X (Version None)
Quarter: 2006Q2

REPORT INFORMATION
  Report Type: 
  Country: None (occurrence: None)
  Receive Date: 20060629
  Receipt Date: 20060218
  Transmission Date: 20061013
  Serious: No
  Sender: FDA-Public Use
  Company Number: PHEH2006US02327

PATIENT
  Sex: Female

DRUGS (2)
  1. ENABLEX [Suspect]
     Dosage: 7.5 MG;  15 MG
     Dates: start: 20050101
  2. ENABLEX [Suspect]
     Dosage: 7.5 MG;  15 MG
     Dates: start: 20060201

REACTIONS (1)
  - ARTHRALGIA [None]
